FAERS Safety Report 6127034-3 (Version None)
Quarter: 2009Q1

REPORT INFORMATION
  Report Type: 
  Country: None (occurrence: None)
  Receive Date: 20090320
  Receipt Date: 20090312
  Transmission Date: 20090719
  Serious: Yes (Hospitalization)
  Sender: FDA-Public Use
  Company Number: FR-B.I. PHARMACEUTICALS,INC./RIDGEFIELD-2009-FF-00202FF

PATIENT
  Sex: Male

DRUGS (7)
  1. SPIRIVA [Suspect]
     Indication: CHRONIC OBSTRUCTIVE PULMONARY DISEASE
     Route: 055
  2. XELEVIA [Concomitant]
     Indication: TYPE 2 DIABETES MELLITUS
     Dosage: 100MG
     Route: 048
  3. DIGITALINE NATIVELLE [Concomitant]
     Indication: MYOCARDIAL ISCHAEMIA
     Dosage: 1ANZ
     Route: 048
  4. PREVISCAN [Concomitant]
     Indication: MYOCARDIAL ISCHAEMIA
     Dosage: .75ANZ
     Route: 048
  5. RAMIPRIL BOUCHARA RECORDATI [Concomitant]
     Indication: MYOCARDIAL ISCHAEMIA
     Dosage: 10MG
     Route: 048
  6. LASIX [Concomitant]
     Indication: MYOCARDIAL ISCHAEMIA
     Dosage: 40MG
     Route: 048
  7. SERETIDE [Concomitant]
     Indication: CHRONIC OBSTRUCTIVE PULMONARY DISEASE

REACTIONS (3)
  - ABDOMINAL PAIN [None]
  - ANGIOEDEMA [None]
  - PALATAL OEDEMA [None]
